FAERS Safety Report 9756364 (Version 1)
Quarter: 2013Q4

REPORT INFORMATION
  Report Type: Spontaneous
  Country: US (occurrence: US)
  Receive Date: 20131213
  Receipt Date: 20131213
  Transmission Date: 20140711
  Serious: No
  Sender: FDA-Public Use
  Company Number: US-GLAXOSMITHKLINE-A1039294A

PATIENT
  Age: 72 Year
  Sex: Male

DRUGS (2)
  1. NICODERM CQ CLEAR 21MG [Suspect]
     Indication: EX-TOBACCO USER
     Dates: start: 20130826
  2. IBUPROFEN [Concomitant]

REACTIONS (2)
  - Poor quality sleep [Recovered/Resolved]
  - Headache [Recovered/Resolved]
